FAERS Safety Report 13498835 (Version 1)
Quarter: 2017Q2

REPORT INFORMATION
  Report Type: Spontaneous
  Country: US (occurrence: US)
  Receive Date: 20170429
  Receipt Date: 20170429
  Transmission Date: 20170830
  Serious: Yes (Hospitalization)
  Sender: FDA-Public Use
  Company Number: None

PATIENT
  Age: 10 Month
  Sex: Male
  Weight: 10.35 kg

DRUGS (5)
  1. OXYBUTYNIN [Suspect]
     Active Substance: OXYBUTYNIN
     Indication: HYPERTONIC BLADDER
     Dosage: ?          QUANTITY:2 ML;?
     Route: 048
     Dates: start: 20161111, end: 20170322
  2. NITROFURANTOIN. [Concomitant]
     Active Substance: NITROFURANTOIN
  3. SENNA [Concomitant]
     Active Substance: SENNA LEAF\SENNOSIDES\SENNOSIDES A AND B
  4. MIRALAX [Concomitant]
     Active Substance: POLYETHYLENE GLYCOL 3350
  5. MILK OF MAG [Concomitant]

REACTIONS (8)
  - Dehydration [None]
  - Vomiting [None]
  - Drug dispensing error [None]
  - Drug dose omission [None]
  - Impaired gastric emptying [None]
  - Ileus [None]
  - Adenovirus infection [None]
  - Weight decreased [None]

NARRATIVE: CASE EVENT DATE: 20161115
